FAERS Safety Report 25705534 (Version 1)
Quarter: 2025Q3

REPORT INFORMATION
  Report Type: Spontaneous
  Country: US (occurrence: None)
  Receive Date: 20250819
  Receipt Date: 20250819
  Transmission Date: 20251021
  Serious: Yes (Other)
  Sender: FDA-CTU
  Company Number: None

PATIENT
  Age: 91 Year
  Sex: Male
  Weight: 86.85 kg

DRUGS (1)
  1. APALUTAMIDE [Suspect]
     Active Substance: APALUTAMIDE
     Indication: Prostate cancer
     Dates: start: 20250411

REACTIONS (4)
  - Memory impairment [None]
  - Disturbance in attention [None]
  - Economic problem [None]
  - Loss of personal independence in daily activities [None]

NARRATIVE: CASE EVENT DATE: 20250819
